FAERS Safety Report 5326539-2 (Version None)
Quarter: 2007Q2

REPORT INFORMATION
  Report Type: 
  Country: None (occurrence: None)
  Receive Date: 20070516
  Receipt Date: 20070514
  Transmission Date: 20071010
  Serious: Yes (Other)
  Sender: FDA-Public Use
  Company Number: PHNR2007AU01107

PATIENT
  Sex: Female

DRUGS (1)
  1. VOLTAREN [Suspect]
     Dosage: APPLIED ONCE
     Route: 061
     Dates: start: 20070514, end: 20070514

REACTIONS (1)
  - DRUG EXPOSURE DURING PREGNANCY [None]
